FAERS Safety Report 6341316-1 (Version None)
Quarter: 2009Q3

REPORT INFORMATION
  Report Type: 
  Country: None (occurrence: None)
  Receive Date: 20090902
  Receipt Date: 20090902
  Transmission Date: 20100115
  Serious: Yes (Life-Threatening, Other)
  Sender: FDA-Public Use
  Company Number: None

PATIENT
  Age: 45 Year
  Sex: Female
  Weight: 92.9874 kg

DRUGS (1)
  1. PROMETHAZINE 12. MG [Suspect]
     Indication: GASTROENTERITIS VIRAL
     Dosage: 1 EVERY 4 HOURS PO
     Route: 048
     Dates: start: 20090831, end: 20090901

REACTIONS (2)
  - CHEST PAIN [None]
  - DRUG HYPERSENSITIVITY [None]
